FAERS Safety Report 17843863 (Version 1)
Quarter: 2020Q2

REPORT INFORMATION
  Report Type: Spontaneous
  Country: US (occurrence: US)
  Receive Date: 20200601
  Receipt Date: 20200601
  Transmission Date: 20200714
  Serious: No
  Sender: FDA-Public Use
  Company Number: US-GLAXOSMITHKLINE-US2020089323

PATIENT
  Age: 77 Year
  Sex: Female

DRUGS (1)
  1. ALLI [Suspect]
     Active Substance: ORLISTAT
     Indication: WEIGHT LOSS DIET
     Dosage: UNK UNK, TID
     Dates: start: 20200425, end: 20200526

REACTIONS (3)
  - Steatorrhoea [Unknown]
  - Drug ineffective [Unknown]
  - Diarrhoea [Unknown]
